FAERS Safety Report 9644949 (Version 1)
Quarter: 2013Q4

REPORT INFORMATION
  Report Type: Spontaneous
  Country: US (occurrence: None)
  Receive Date: 20131025
  Receipt Date: 20131025
  Transmission Date: 20140711
  Serious: Yes (Death)
  Sender: FDA-Public Use
  Company Number: 2013SP007391

PATIENT
  Age: 25 Year
  Sex: Male

DRUGS (6)
  1. HALOPERIDOL DECANOATE [Suspect]
     Indication: PSYCHOTIC DISORDER
     Route: 030
  2. CEFTRIAXONE [Concomitant]
     Indication: ANTIBIOTIC THERAPY
     Route: 042
  3. DIAZEPAM [Concomitant]
     Indication: ANXIOLYTIC THERAPY
     Route: 030
  4. CARBAMAZEPINE [Concomitant]
     Indication: PSYCHOTIC DISORDER
     Route: 048
  5. CARBAMAZEPINE [Concomitant]
     Indication: PSYCHOTIC DISORDER
     Route: 048
  6. CARBAMAZEPINE [Concomitant]
     Indication: PSYCHOTIC DISORDER
     Route: 048

REACTIONS (1)
  - Pulmonary embolism [Fatal]
